FAERS Safety Report 22629455 (Version 2)
Quarter: 2023Q4

REPORT INFORMATION
  Report Type: Spontaneous
  Country: CA (occurrence: CA)
  Receive Date: 20230622
  Receipt Date: 20231219
  Transmission Date: 20240110
  Serious: Yes (Other)
  Sender: FDA-Public Use
  Company Number: CA-PFIZER INC-202300227425

PATIENT
  Age: 30 Year
  Sex: Male

DRUGS (4)
  1. METHOTREXATE SODIUM [Suspect]
     Active Substance: METHOTREXATE SODIUM
     Indication: Crohn^s disease
     Dosage: UNK UNK, WEEKLY
  2. INFLECTRA [Concomitant]
     Active Substance: INFLIXIMAB-DYYB
     Indication: Crohn^s disease
     Dosage: 900 MG, CYCLIC (WEEK 0,2,6, THEN Q8 WEEKS)
     Route: 042
     Dates: start: 20220318, end: 20220629
  3. INFLECTRA [Concomitant]
     Active Substance: INFLIXIMAB-DYYB
     Dosage: 10 MG/KG, CYCLIC (INDUCTION WEEK 0,2,6 THEN EVERY 8 WEEKS)
     Route: 042
     Dates: start: 20220817, end: 20230328
  4. INFLECTRA [Concomitant]
     Active Substance: INFLIXIMAB-DYYB
     Dosage: REINDUCTION DOSE UNKNOWN - DAY 0 AND AFTER 1 MONTH
     Route: 042
     Dates: start: 20230418, end: 20230518

REACTIONS (4)
  - Gastrointestinal disorder [Unknown]
  - Product dose omission issue [Unknown]
  - Abdominal pain [Not Recovered/Not Resolved]
  - Off label use [Unknown]
